FAERS Safety Report 7638472-1 (Version None)
Quarter: 2011Q3

REPORT INFORMATION
  Report Type: 
  Country: None (occurrence: None)
  Receive Date: 20110727
  Receipt Date: 20071030
  Transmission Date: 20111222
  Serious: Yes (Hospitalization, Other)
  Sender: FDA-Public Use
  Company Number: PHBS2007AT11645

PATIENT
  Age: 61 Year
  Sex: Female
  Weight: 72 kg

DRUGS (25)
  1. CERTICAN [Suspect]
     Indication: RENAL TRANSPLANT
     Route: 048
     Dates: start: 20050530
  2. CERTICAN [Suspect]
     Dosage: 3 MG, DAILY
     Route: 048
     Dates: start: 20050601
  3. CERTICAN [Suspect]
     Dosage: 1.5 MG, DAILY
     Route: 048
     Dates: start: 20050614
  4. CERTICAN [Suspect]
     Dosage: 0.75 MG, DAILY
     Route: 048
     Dates: start: 20070627
  5. CERTICAN [Suspect]
     Dosage: 2.25 MG, DAILY
     Route: 048
     Dates: start: 20050603
  6. SANDIMMUNE [Suspect]
     Indication: RENAL TRANSPLANT
     Route: 065
     Dates: end: 20050501
  7. MYFORTIC [Concomitant]
     Dosage: 1440 MG, DAILY
     Route: 065
     Dates: start: 20050518, end: 20050621
  8. EBRANTIL [Concomitant]
  9. LESCOL [Concomitant]
  10. TIOCTAN [Concomitant]
  11. MYFORTIC [Concomitant]
     Dosage: 1440 MG, DAILY
     Route: 065
     Dates: start: 20050823
  12. DIOVAN [Concomitant]
  13. ENAC [Concomitant]
  14. LASIX [Concomitant]
  15. INSULIN [Concomitant]
  16. MYFORTIC [Concomitant]
     Indication: RENAL TRANSPLANT
     Dosage: 720 MG, DAILY
     Route: 065
     Dates: start: 20041103
  17. TRAZODONE HCL [Concomitant]
  18. RABEPRAZOLE SODIUM [Concomitant]
  19. SODIUM BICARBONATE [Concomitant]
  20. ARANESP [Concomitant]
  21. CERTICAN [Suspect]
     Dosage: 3 MG, DAILY
     Route: 048
     Dates: start: 20050606
  22. SANDIMMUNE [Suspect]
     Dosage: 75 MG, DAILY
     Route: 065
     Dates: start: 20050518, end: 20050601
  23. MYFORTIC [Concomitant]
     Dosage: 1080 MG, DAILY
     Route: 065
     Dates: start: 20050726
  24. PREDNISOLONE [Concomitant]
     Indication: RENAL TRANSPLANT
     Dosage: 5 TO 10 MG DAILY
     Route: 065
     Dates: start: 20050518, end: 20050628
  25. CARVEDILOL [Concomitant]

REACTIONS (16)
  - CHRONIC ALLOGRAFT NEPHROPATHY [None]
  - OEDEMA PERIPHERAL [None]
  - POLYNEUROPATHY IN MALIGNANT DISEASE [None]
  - URINARY TRACT INFECTION [None]
  - DIABETES MELLITUS INADEQUATE CONTROL [None]
  - VOMITING [None]
  - RENAL IMPAIRMENT [None]
  - PROTEINURIA [None]
  - BLOOD CREATININE INCREASED [None]
  - HAEMOGLOBIN ABNORMAL [None]
  - BLOOD CREATININE ABNORMAL [None]
  - PLATELET COUNT ABNORMAL [None]
  - BLOOD TRIGLYCERIDES ABNORMAL [None]
  - BLOOD CHOLESTEROL ABNORMAL [None]
  - PHARYNGITIS [None]
  - NEPHROPATHY TOXIC [None]
